FAERS Safety Report 17188118 (Version 1)
Quarter: 2019Q4

REPORT INFORMATION
  Report Type: Spontaneous
  Country: JP (occurrence: JP)
  Receive Date: 20191221
  Receipt Date: 20191221
  Transmission Date: 20200122
  Serious: Yes (Hospitalization, Other)
  Sender: FDA-Public Use
  Company Number: JP-AMGEN-JPNSP2019212394

PATIENT
  Age: 68 Year
  Sex: Male
  Weight: 78.9 kg

DRUGS (1)
  1. PARSABIV [Suspect]
     Active Substance: ETELCALCETIDE HYDROCHLORIDE
     Indication: HYPERPARATHYROIDISM SECONDARY
     Dosage: 5 MILLIGRAM (5 MG)
     Route: 010
     Dates: end: 20190408

REACTIONS (1)
  - Pharyngeal cancer [Recovering/Resolving]

NARRATIVE: CASE EVENT DATE: 20190218
